FAERS Safety Report 10047701 (Version 2)
Quarter: 2014Q1

REPORT INFORMATION
  Report Type: Spontaneous
  Country: FR (occurrence: FR)
  Receive Date: 20140331
  Receipt Date: 20140331
  Transmission Date: 20141002
  Serious: Yes (Other)
  Sender: FDA-Public Use
  Company Number: FR-JNJFOC-20140216113

PATIENT
  Age: 89 Year
  Sex: Male

DRUGS (14)
  1. XARELTO [Suspect]
     Indication: CEREBROVASCULAR ACCIDENT PROPHYLAXIS
     Route: 048
     Dates: start: 20130930, end: 20131030
  2. XARELTO [Suspect]
     Indication: THROMBOSIS PROPHYLAXIS
     Route: 048
     Dates: start: 20130930, end: 20131030
  3. XARELTO [Suspect]
     Indication: EMBOLISM VENOUS
     Route: 048
     Dates: start: 20130930, end: 20131030
  4. XARELTO [Suspect]
     Indication: DEEP VEIN THROMBOSIS
     Route: 048
     Dates: start: 20130930, end: 20131030
  5. XARELTO [Suspect]
     Indication: ATRIAL FIBRILLATION
     Route: 048
     Dates: start: 20130930, end: 20131030
  6. XARELTO [Suspect]
     Indication: ARRHYTHMIA
     Route: 048
     Dates: start: 20130930, end: 20131030
  7. PERINDOPRIL [Concomitant]
     Route: 065
  8. TRINITRINE [Concomitant]
     Route: 065
  9. DIFFU K [Concomitant]
     Route: 065
  10. FUROSEMIDE [Concomitant]
     Route: 065
  11. HEMIGOXINE [Concomitant]
     Route: 065
  12. PREDNISOLONE [Concomitant]
     Route: 065
  13. CACIT D3 [Concomitant]
     Route: 065
  14. ALFUZOSIN [Concomitant]
     Route: 065

REACTIONS (1)
  - Vomiting [Recovered/Resolved]
